FAERS Safety Report 7527674-0 (Version None)
Quarter: 2011Q2

REPORT INFORMATION
  Report Type: 
  Country: None (occurrence: None)
  Receive Date: 20110607
  Receipt Date: 20110524
  Transmission Date: 20111010
  Serious: Yes (Other)
  Sender: FDA-Public Use
  Company Number: PHEH2006US08866

PATIENT
  Sex: Male
  Weight: 87.982 kg

DRUGS (33)
  1. LOTRISONE [Concomitant]
  2. ZYBAN [Concomitant]
  3. APAP W/ CODEINE [Concomitant]
  4. TRAMADOL HCL [Concomitant]
  5. RANITIDINE [Concomitant]
  6. NYSTATIN [Concomitant]
  7. TAXOTERE [Concomitant]
  8. CEPHALEXIN [Concomitant]
  9. SULFAMETHOXAZOLE AND TRIMETHOPRIM DOUBLE STRENGTH [Concomitant]
  10. ULTRACET [Concomitant]
  11. KLOR-CON [Concomitant]
  12. SPIRIVA [Concomitant]
  13. PROTONIX [Concomitant]
  14. ZOMETA [Suspect]
  15. ALPRAZOLAM [Concomitant]
  16. ZYRTEC [Concomitant]
  17. PREDNISONE [Concomitant]
  18. LUPRON [Concomitant]
     Dosage: UNK
  19. BACTROBAN                               /NET/ [Concomitant]
  20. HYDROCORT [Concomitant]
  21. CASODEX [Concomitant]
  22. CIPRO [Concomitant]
  23. DEXAMETHASON ^COPHAR^ [Concomitant]
  24. ZOLADEX [Concomitant]
  25. NAVELBINE [Concomitant]
  26. FUROSEMIDE [Concomitant]
  27. KETOCONAZOLE [Concomitant]
  28. HYDROCODONE BITARTRATE AND ACETAMINOPHEN [Concomitant]
  29. FLOMAX [Concomitant]
  30. MEGESTROL ACETATE [Concomitant]
  31. HYDROCHLOROTHIAZIDE [Concomitant]
  32. MEGACE [Concomitant]
  33. OS-CAL [Concomitant]

REACTIONS (25)
  - OSTEONECROSIS OF JAW [None]
  - ANXIETY [None]
  - MUSCLE SPASMS [None]
  - METASTASES TO BONE [None]
  - INJURY [None]
  - GYNAECOMASTIA [None]
  - DYSPNOEA [None]
  - LUNG NEOPLASM [None]
  - SINUSITIS [None]
  - ALCOHOL ABUSE [None]
  - ARTHRITIS [None]
  - EXTRASKELETAL OSSIFICATION [None]
  - METASTATIC NEOPLASM [None]
  - BRONCHITIS [None]
  - PAIN [None]
  - CHEST PAIN [None]
  - ABDOMINAL PAIN UPPER [None]
  - WEIGHT DECREASED [None]
  - HILAR LYMPHADENOPATHY [None]
  - INTERVERTEBRAL DISC DEGENERATION [None]
  - PROSTATE CANCER METASTATIC [None]
  - BONE PAIN [None]
  - BLOOD ALKALINE PHOSPHATASE INCREASED [None]
  - ROTATOR CUFF SYNDROME [None]
  - URTICARIA [None]
